FAERS Safety Report 15252762 (Version 2)
Quarter: 2018Q4

REPORT INFORMATION
  Report Type: Spontaneous
  Country: US (occurrence: US)
  Receive Date: 20180807
  Receipt Date: 20181102
  Transmission Date: 20190204
  Serious: No
  Sender: FDA-Public Use
  Company Number: US-RADIUS HEALTH INC.-2018US001225

PATIENT
  Sex: Female

DRUGS (1)
  1. TYMLOS [Suspect]
     Active Substance: ABALOPARATIDE
     Indication: OSTEOPOROSIS POSTMENOPAUSAL
     Dosage: 80 MCG, DAILY
     Route: 058

REACTIONS (12)
  - Memory impairment [Unknown]
  - Headache [Unknown]
  - Palpitations [Unknown]
  - Major depression [Unknown]
  - Nausea [Unknown]
  - Heart rate increased [Unknown]
  - Toothache [Unknown]
  - Bone pain [Unknown]
  - Abdominal distension [Unknown]
  - Dizziness [Unknown]
  - Feeling abnormal [Unknown]
  - Insomnia [Unknown]
